FAERS Safety Report 8086188-2 (Version None)
Quarter: 2012Q1

REPORT INFORMATION
  Report Type: 
  Country: None (occurrence: None)
  Receive Date: 20120128
  Receipt Date: 20110426
  Transmission Date: 20120608
  Serious: No
  Sender: FDA-Public Use
  Company Number: US-ABBOTT-11P-163-0721904-00

PATIENT
  Age: 27 Year
  Sex: Female

DRUGS (3)
  1. THERAQUIL [Concomitant]
     Indication: INSOMNIA
     Dates: start: 20090101
  2. HUMIRA [Suspect]
     Indication: PSORIASIS
     Dates: start: 20110407
  3. YASMIN [Concomitant]
     Indication: CONTRACEPTION
     Dosage: ESP 3MG, 0.02MG
     Dates: start: 20101201

REACTIONS (3)
  - NASOPHARYNGITIS [None]
  - SINUS CONGESTION [None]
  - COUGH [None]
